FAERS Safety Report 17001364 (Version 1)
Quarter: 2019Q4

REPORT INFORMATION
  Report Type: Spontaneous
  Country: GB (occurrence: GB)
  Receive Date: 20191106
  Receipt Date: 20191106
  Transmission Date: 20200122
  Serious: Yes (Other)
  Sender: FDA-Public Use
  Company Number: GB-BEH-2018087965

PATIENT
  Age: 38 Year
  Sex: Female
  Weight: 61 kg

DRUGS (1)
  1. PRIVIGEN [Suspect]
     Active Substance: HUMAN IMMUNOGLOBULIN G
     Indication: MULTIFOCAL MOTOR NEUROPATHY
     Dosage: 120 GRAM, TOT
     Route: 042
     Dates: start: 20171031, end: 20171101

REACTIONS (3)
  - Dyspnoea [Recovered/Resolved]
  - Pulmonary embolism [Recovered/Resolved]
  - Drug monitoring procedure not performed [Recovered/Resolved]

NARRATIVE: CASE EVENT DATE: 20171101
